FAERS Safety Report 6675393-5 (Version None)
Quarter: 2010Q2

REPORT INFORMATION
  Report Type: 
  Country: None (occurrence: None)
  Receive Date: 20100409
  Receipt Date: 20100310
  Transmission Date: 20101027
  Serious: No
  Sender: FDA-Public Use
  Company Number: A0850729A

PATIENT
  Age: 30 Year
  Sex: Female

DRUGS (1)
  1. TYKERB [Suspect]
     Indication: DRUG USE FOR UNKNOWN INDICATION
     Dosage: 1000MG IN THE MORNING
     Route: 048
     Dates: start: 20100303

REACTIONS (2)
  - DIARRHOEA [None]
  - DYSPEPSIA [None]
